FAERS Safety Report 6649088-8 (Version None)
Quarter: 2010Q1

REPORT INFORMATION
  Report Type: 
  Country: None (occurrence: None)
  Receive Date: 20100319
  Receipt Date: 20100309
  Transmission Date: 20100710
  Serious: Yes (Death)
  Sender: FDA-Public Use
  Company Number: CLOF-1000721

PATIENT
  Age: 13 Year
  Sex: Male
  Weight: 48 kg

DRUGS (11)
  1. EVOLTRA (CLOFARABINE) SOLUTION FOR INFUSION [Suspect]
     Indication: NON-HODGKIN'S LYMPHOMA
     Dosage: 40 MG/M2, QDX5, INTRAVENOUS
     Route: 042
     Dates: start: 20090715, end: 20090719
  2. VINCRISTINE [Suspect]
     Indication: T-CELL LYMPHOMA
     Dosage: 1.5 MG/M2, ONCE, 2 MG, ONCE
     Dates: start: 20090710, end: 20090710
  3. VINCRISTINE [Suspect]
     Indication: T-CELL LYMPHOMA
     Dosage: 1.5 MG/M2, ONCE, 2 MG, ONCE
     Dates: start: 20090813, end: 20090813
  4. DEXAMETHASONE [Suspect]
     Indication: T-CELL LYMPHOMA
     Dosage: 10 MG/M2, ONCE, 14 MG, QD, 8 MG, QD
     Dates: start: 20090710, end: 20090710
  5. DEXAMETHASONE [Suspect]
     Indication: T-CELL LYMPHOMA
     Dosage: 10 MG/M2, ONCE, 14 MG, QD, 8 MG, QD
     Dates: start: 20090715, end: 20090806
  6. DEXAMETHASONE [Suspect]
     Indication: T-CELL LYMPHOMA
     Dosage: 10 MG/M2, ONCE, 14 MG, QD, 8 MG, QD
     Dates: start: 20090813, end: 20090916
  7. METHOTREXATE [Suspect]
     Indication: T-CELL LYMPHOMA
     Dosage: 12 MG, ONCE, INTRATHECAL
     Route: 037
     Dates: start: 20090713, end: 20090713
  8. CYCLOPHOSPHAMIDE [Suspect]
     Indication: T-CELL LYMPHOMA
     Dosage: 300 MG/M2, QDX5
     Dates: start: 20090715, end: 20090719
  9. ERWINASE (ASPARAGINASE) UNKNOWN [Suspect]
     Indication: T-CELL LYMPHOMA
     Dosage: 28000 U, QOD
     Dates: start: 20090730, end: 20090809
  10. ETOPOSIDE [Suspect]
     Indication: T-CELL LYMPHOMA
     Dosage: 100 MG/M2, QDX5
     Dates: start: 20090715, end: 20090719
  11. NELARBINE (NELARBINE) UNKNOWN [Suspect]
     Dosage: 910 MG, QD
     Dates: start: 20090818, end: 20090819

REACTIONS (5)
  - DRUG HYPERSENSITIVITY [None]
  - MALIGNANT NEOPLASM PROGRESSION [None]
  - PLEURAL EFFUSION [None]
  - T-CELL LYMPHOMA STAGE III [None]
  - THERAPEUTIC RESPONSE DELAYED [None]
